FAERS Safety Report 10248726 (Version 2)
Quarter: 2014Q2

REPORT INFORMATION
  Report Type: Spontaneous
  Country: US (occurrence: US)
  Receive Date: 20140620
  Receipt Date: 20140620
  Transmission Date: 20141212
  Serious: Yes (Other)
  Sender: FDA-Public Use
  Company Number: 2014SP002376

PATIENT
  Age: 55 Year
  Sex: Male
  Weight: 75 kg

DRUGS (6)
  1. CYTARABINE [Suspect]
     Indication: BURKITT^S LYMPHOMA
     Dates: start: 20140124
  2. ETOPOSIDE [Suspect]
     Indication: BURKITT^S LYMPHOMA
     Dates: start: 20140124
  3. METHOTREXATE [Suspect]
     Indication: BURKITT^S LYMPHOMA
     Dates: start: 20140124
  4. IFOSFAMIDE [Suspect]
     Indication: BURKITT^S LYMPHOMA
     Dates: start: 20140124
  5. RITUXIMAB [Suspect]
     Indication: BURKITT^S LYMPHOMA
     Dates: start: 20140124
  6. CLOZAPINE [Concomitant]

REACTIONS (2)
  - Neutropenia [Recovered/Resolved]
  - White blood cell count decreased [Recovered/Resolved]
